FAERS Safety Report 5875680-4 (Version None)
Quarter: 2008Q3

REPORT INFORMATION
  Report Type: 
  Country: None (occurrence: None)
  Receive Date: 20080904
  Receipt Date: 20080822
  Transmission Date: 20090109
  Serious: Yes (Hospitalization)
  Sender: FDA-Public Use
  Company Number: 2008AL006722

PATIENT
  Age: 94 Year
  Sex: Female
  Weight: 56.246 kg

DRUGS (10)
  1. DIGOXIN [Suspect]
     Indication: ARRHYTHMIA
     Dosage: 0.125MG DAILY PO
     Route: 048
  2. LEVOTHYROXIN 0.75MG DAILY [Concomitant]
  3. AMIODARONE 200MG DAILY [Concomitant]
  4. ACIPHEX 20MG DAILY [Concomitant]
  5. FUROSIMIDE 40MG DAILY [Concomitant]
  6. POTASSIUM 10MEQ DAILY [Concomitant]
  7. LEXAPRO 10MG BID [Concomitant]
  8. METOPROLOL 12.5MG DAILY [Concomitant]
  9. ASPIRIN [Concomitant]
  10. CARAFATE DAILY [Concomitant]

REACTIONS (15)
  - ANXIETY [None]
  - CARDIAC FAILURE CONGESTIVE [None]
  - CONDITION AGGRAVATED [None]
  - CONFUSIONAL STATE [None]
  - DEPRESSION [None]
  - DIARRHOEA [None]
  - DIZZINESS [None]
  - GAIT DISTURBANCE [None]
  - HALLUCINATION [None]
  - HEART RATE INCREASED [None]
  - NAUSEA [None]
  - RESTLESS LEGS SYNDROME [None]
  - THERAPEUTIC AGENT TOXICITY [None]
  - VISUAL IMPAIRMENT [None]
  - VOMITING [None]
